FAERS Safety Report 8904935 (Version 1)
Quarter: 2012Q4

REPORT INFORMATION
  Report Type: 
  Country: US (occurrence: US)
  Receive Date: 20121109
  Receipt Date: 20121109
  Transmission Date: 20130627
  Serious: No
  Sender: FDA-Public Use
  Company Number: US-ASTRAZENECA-2012SE84750

PATIENT
  Age: 39 Year
  Sex: Female

DRUGS (3)
  1. SEROQUEL XR [Suspect]
     Indication: PANIC DISORDER
     Route: 048
  2. SEROQUEL XR [Suspect]
     Indication: PANIC DISORDER
     Route: 048
  3. LEXAPRO [Concomitant]

REACTIONS (2)
  - Weight increased [Unknown]
  - Incorrect dose administered [Unknown]
